FAERS Safety Report 17860653 (Version 1)
Quarter: 2020Q2

REPORT INFORMATION
  Report Type: Spontaneous
  Country: US (occurrence: US)
  Receive Date: 20200604
  Receipt Date: 20200604
  Transmission Date: 20200714
  Serious: No
  Sender: FDA-Public Use
  Company Number: US-SA-2020SA141693

PATIENT

DRUGS (2)
  1. AUBAGIO [Suspect]
     Active Substance: TERIFLUNOMIDE
     Indication: MULTIPLE SCLEROSIS
     Dosage: 14 MG, QD
     Route: 048
  2. CENTRUM SILVER +50 [Suspect]
     Active Substance: MINERALS\VITAMINS
     Route: 065

REACTIONS (4)
  - Condition aggravated [Unknown]
  - Herpes virus infection [Unknown]
  - Constipation [Unknown]
  - Gout [Unknown]

NARRATIVE: CASE EVENT DATE: 202005
